FAERS Safety Report 7609598-3 (Version None)
Quarter: 2011Q3

REPORT INFORMATION
  Report Type: 
  Country: None (occurrence: None)
  Receive Date: 20110714
  Receipt Date: 20110701
  Transmission Date: 20111222
  Serious: Yes (Other)
  Sender: FDA-Public Use
  Company Number: US-BAYER-2011-058344

PATIENT
  Sex: Female

DRUGS (1)
  1. SODIUM BICARBONATE [Suspect]

REACTIONS (1)
  - CEREBROVASCULAR ACCIDENT [None]
